FAERS Safety Report 8943879 (Version 1)
Quarter: 2012Q4

REPORT INFORMATION
  Report Type: Report from Study
  Country: ES (occurrence: ES)
  Receive Date: 20121204
  Receipt Date: 20121204
  Transmission Date: 20130627
  Serious: Yes (Hospitalization)
  Sender: FDA-Public Use
  Company Number: ES-SANOFI-AVENTIS-2012SA086872

PATIENT
  Age: 63 Year
  Sex: Female
  Weight: 55 kg

DRUGS (9)
  1. DOCETAXEL [Suspect]
     Indication: BREAST CANCER
     Dosage: form: vial
dose level 60 mg/m2
     Route: 042
     Dates: start: 20100915
  2. DOCETAXEL [Suspect]
     Indication: BREAST CANCER
     Dosage: form: vial
dose level 60 mg/m2
     Route: 042
     Dates: start: 20100915
  3. DOCETAXEL [Suspect]
     Indication: BREAST CANCER
     Dosage: form: vial
dose level 60 mg/m2
     Route: 042
     Dates: start: 20100915
  4. DOCETAXEL [Suspect]
     Indication: BREAST CANCER
     Dosage: form: vial
dose level 60 mg/m2
     Route: 042
     Dates: start: 20100915
  5. TRASTUZUMAB [Suspect]
     Indication: BREAST CANCER
     Dosage: form: vial
dose level 8 mg/kg
     Route: 042
     Dates: start: 20100915
  6. TRASTUZUMAB [Suspect]
     Indication: BREAST CANCER
     Dosage: form: vial
dose level 6 mg/kg
     Route: 042
     Dates: start: 20100928
  7. CARBOPLATIN [Suspect]
     Indication: BREAST CANCER
     Dosage: form: ampoule
dose level: 5 AUC
     Route: 042
     Dates: start: 20100915
  8. ENALAPRIL [Concomitant]
  9. PARACETAMOL [Concomitant]

REACTIONS (3)
  - Hyponatraemia [Recovered/Resolved]
  - Mucosal inflammation [Recovered/Resolved]
  - Neutropenia [Recovered/Resolved]
